FAERS Safety Report 9988695 (Version 3)
Quarter: 2015Q1

REPORT INFORMATION
  Report Type: Spontaneous
  Country: IT (occurrence: IT)
  Receive Date: 20140310
  Receipt Date: 20150127
  Transmission Date: 20150721
  Serious: Yes (Other)
  Sender: FDA-Public Use
  Company Number: IT-ROCHE-1361810

PATIENT
  Age: 49 Year
  Sex: Male
  Weight: 83 kg

DRUGS (4)
  1. PEGASYS [Suspect]
     Active Substance: PEGINTERFERON ALFA-2A
     Indication: CHRONIC HEPATITIS C
     Dosage: SOLUTION FOR INJECTION ; PRE-FILLED SYRINGE 0.5 ML: 360 MCG/ML
     Route: 058
     Dates: start: 20130906, end: 20140225
  2. COPEGUS [Interacting]
     Active Substance: RIBAVIRIN
     Indication: CHRONIC HEPATITIS C
     Dosage: 42 FILM-COATED TABLETS, 200 MG IN BOTTLE
     Route: 048
     Dates: start: 20130906, end: 20131021
  3. COPEGUS [Interacting]
     Active Substance: RIBAVIRIN
     Dosage: DOSE REDUCED DUE TO PANCYTOPENIA
     Route: 048
     Dates: start: 20131022, end: 20140225
  4. INCIVO [Interacting]
     Active Substance: TELAPREVIR
     Indication: CHRONIC HEPATITIS C
     Dosage: 375 MG -BOTTLE (HDPE)^ - 1X42 TABLETS
     Route: 048
     Dates: start: 20131015, end: 20140107

REACTIONS (10)
  - Anorectal discomfort [Recovered/Resolved]
  - Depression [Recovered/Resolved]
  - Irritability [Recovered/Resolved]
  - Erythema [Recovering/Resolving]
  - Decreased appetite [Not Recovered/Not Resolved]
  - Pancytopenia [Recovering/Resolving]
  - Rash pruritic [Recovering/Resolving]
  - Nausea [Not Recovered/Not Resolved]
  - Abdominal pain upper [Not Recovered/Not Resolved]
  - Drug interaction [Unknown]

NARRATIVE: CASE EVENT DATE: 20131021
